FAERS Safety Report 9371163 (Version 2)
Quarter: 2013Q4

REPORT INFORMATION
  Report Type: Spontaneous
  Country: FR (occurrence: FR)
  Receive Date: 20130627
  Receipt Date: 20131206
  Transmission Date: 20140711
  Serious: Yes (Hospitalization)
  Sender: FDA-Public Use
  Company Number: FR-ROCHE-1241216

PATIENT
  Age: 36 Year
  Sex: Male

DRUGS (2)
  1. APRANAX [Suspect]
     Indication: TORTICOLLIS
     Route: 048
  2. IBUPROFENE [Suspect]
     Indication: TORTICOLLIS
     Route: 048
     Dates: start: 20130417, end: 20130419

REACTIONS (1)
  - Cellulitis [Recovered/Resolved]
